FAERS Safety Report 17618746 (Version 3)
Quarter: 2020Q2

REPORT INFORMATION
  Report Type: Spontaneous
  Country: CA (occurrence: US)
  Receive Date: 20200402
  Receipt Date: 20200505
  Transmission Date: 20200713
  Serious: No
  Sender: FDA-Public Use
  Company Number: CA-BAUSCH-BL-2020-007798

PATIENT
  Age: 51 Year
  Sex: Female
  Weight: 56.75 kg

DRUGS (1)
  1. LUMIFY [Suspect]
     Active Substance: BRIMONIDINE TARTRATE
     Indication: OCULAR HYPERAEMIA
     Route: 047
     Dates: start: 20200305, end: 20200305

REACTIONS (4)
  - Asthenopia [Recovered/Resolved]
  - Dry eye [Recovered/Resolved]
  - Abnormal sensation in eye [Recovered/Resolved]
  - Eye irritation [Recovered/Resolved]

NARRATIVE: CASE EVENT DATE: 20200305
